FAERS Safety Report 8553465-8 (Version None)
Quarter: 2012Q3

REPORT INFORMATION
  Report Type: 
  Country: None (occurrence: None)
  Receive Date: 20120731
  Receipt Date: 20120726
  Transmission Date: 20120928
  Serious: Yes (Death, Life-Threatening)
  Sender: FDA-Public Use
  Company Number: DE-ASTRAZENECA-2012SE19599

PATIENT
  Age: 788 Month
  Sex: Male
  Weight: 80 kg

DRUGS (10)
  1. PREDNISOLONE [Concomitant]
     Dosage: GRADUALLY DECREASING DOSES
     Route: 048
  2. ACETYLCYSTEINE [Concomitant]
     Route: 048
  3. CRESTOR [Concomitant]
     Route: 048
  4. DEKRISTOL [Concomitant]
     Route: 048
  5. PANTOPRAZOLE [Concomitant]
     Route: 048
  6. VERAPAMIL [Concomitant]
     Route: 048
  7. ASPIRIN [Concomitant]
     Route: 048
  8. METFORMIN HYDROCHLORIDE [Concomitant]
     Route: 048
  9. BRILINTA [Suspect]
     Route: 048
  10. VALSARTAN [Concomitant]
     Route: 048

REACTIONS (2)
  - MUSCLE SPASTICITY [None]
  - DEATH [None]
